FAERS Safety Report 6337295-3 (Version None)
Quarter: 2009Q3

REPORT INFORMATION
  Report Type: 
  Country: None (occurrence: None)
  Receive Date: 20090901
  Receipt Date: 20090901
  Transmission Date: 20100115
  Serious: Yes (Other)
  Sender: FDA-Public Use
  Company Number: None

PATIENT
  Age: 64 Year
  Sex: Female

DRUGS (2)
  1. LYRICA [Suspect]
     Indication: NEURALGIA
     Dosage: LYRICA 50 MG EVERY MORNING, 50 MG AT NOON AND 100 MG AT BEDTIME ORALLY
     Route: 048
  2. FLEXERLL [Concomitant]

REACTIONS (1)
  - VISION BLURRED [None]
